FAERS Safety Report 7557149-4 (Version None)
Quarter: 2011Q2

REPORT INFORMATION
  Report Type: 
  Country: None (occurrence: None)
  Receive Date: 20110620
  Receipt Date: 20110606
  Transmission Date: 20111010
  Serious: Yes (Hospitalization)
  Sender: FDA-Public Use
  Company Number: FR-SANOFI-AVENTIS-2011SA036043

PATIENT
  Age: 67 Year
  Sex: Female

DRUGS (9)
  1. ATORVASTATIN CALCIUM [Concomitant]
     Route: 048
  2. TENORMIN [Concomitant]
     Route: 048
  3. LOVENOX [Suspect]
     Route: 058
     Dates: start: 20101202, end: 20101214
  4. PLAVIX [Suspect]
     Route: 048
     Dates: end: 20101210
  5. POTASSIUM CHLORIDE [Suspect]
     Route: 048
     Dates: end: 20101210
  6. PROZAC [Concomitant]
     Route: 048
  7. ASPIRIN [Concomitant]
     Route: 048
  8. LASIX [Suspect]
     Route: 048
     Dates: end: 20101210
  9. PERINDOPRIL ERBUMINE [Concomitant]
     Dosage: DOSE:1 UNIT(S)
     Route: 048

REACTIONS (5)
  - INJECTION SITE EXFOLIATION [None]
  - INJECTION SITE REACTION [None]
  - PRURITUS [None]
  - INJECTION SITE ERYTHEMA [None]
  - SKIN EXFOLIATION [None]
